FAERS Safety Report 8524227-2 (Version None)
Quarter: 2012Q3

REPORT INFORMATION
  Report Type: 
  Country: None (occurrence: None)
  Receive Date: 20120720
  Receipt Date: 20120710
  Transmission Date: 20120928
  Serious: Yes (Other)
  Sender: FDA-Public Use
  Company Number: MW-B.I. PHARMACEUTICALS,INC./RIDGEFIELD-2012-EU-03537GD

PATIENT
  Sex: Female

DRUGS (5)
  1. NEVIRAPINE [Suspect]
     Indication: PROPHYLAXIS
  2. COMBIVIR [Suspect]
     Indication: HIV INFECTION
     Dosage: 300MG ZIDOVUDINE AND 150MG LAMIVUDINE TWICE A DAY
     Route: 048
  3. COMBIVIR [Suspect]
     Indication: PROPHYLAXIS
  4. NEVIRAPINE [Suspect]
     Indication: HUMAN IMMUNODEFICIENCY VIRUS TRANSMISSION
     Dosage: 200 MG
     Route: 048
  5. COMBIVIR [Suspect]
     Indication: HUMAN IMMUNODEFICIENCY VIRUS TRANSMISSION

REACTIONS (1)
  - MALARIA [None]
